FAERS Safety Report 7620679-0 (Version None)
Quarter: 2011Q3

REPORT INFORMATION
  Report Type: 
  Country: None (occurrence: None)
  Receive Date: 20110719
  Receipt Date: 20110125
  Transmission Date: 20111222
  Serious: Yes (Other)
  Sender: FDA-Public Use
  Company Number: US-GLAXOSMITHKLINE-A0910423A

PATIENT
  Sex: Female

DRUGS (1)
  1. ROSIGLITAZONE MALEATE [Suspect]
     Indication: DIABETES MELLITUS
     Dosage: 4MG PER DAY
     Route: 048
     Dates: end: 20071101

REACTIONS (7)
  - VOMITING [None]
  - CARDIAC FAILURE CONGESTIVE [None]
  - DIZZINESS [None]
  - LUNG DISORDER [None]
  - TREMOR [None]
  - HEADACHE [None]
  - CATARACT [None]
